FAERS Safety Report 21128581 (Version 1)
Quarter: 2022Q3

REPORT INFORMATION
  Report Type: Spontaneous
  Country: US (occurrence: US)
  Receive Date: 20220725
  Receipt Date: 20220725
  Transmission Date: 20221027
  Serious: No
  Sender: FDA-Public Use
  Company Number: US-NOVARTISTESTPH-NVSC2022US167857

PATIENT
  Sex: Male

DRUGS (1)
  1. PLUVICTO [Suspect]
     Active Substance: LUTETIUM LU-177 VIPIVOTIDE TETRAXETAN
     Indication: Hormone-refractory prostate cancer
     Dosage: 7400 MBQ, ONCE/SINGLE (200 MCI)
     Route: 042
     Dates: start: 20220712, end: 20220712

REACTIONS (3)
  - Bone pain [Unknown]
  - Abdominal pain [Unknown]
  - Diarrhoea [Unknown]
